FAERS Safety Report 7534609-3 (Version None)
Quarter: 2011Q2

REPORT INFORMATION
  Report Type: 
  Country: None (occurrence: None)
  Receive Date: 20110609
  Receipt Date: 20100714
  Transmission Date: 20111010
  Serious: Yes (Hospitalization)
  Sender: FDA-Public Use
  Company Number: PHHO2009DE05192

PATIENT
  Sex: Male
  Weight: 95 kg

DRUGS (3)
  1. ZOLEDRONIC ACID [Suspect]
     Indication: METASTASES TO BONE
     Dosage: 4 MG, EVERY 3 MONTHS
     Route: 042
     Dates: start: 20051103
  2. SANDOCAL [Concomitant]
     Indication: METASTASES TO BONE
     Route: 048
     Dates: start: 20051103
  3. MARCUMAR [Concomitant]
     Indication: ARRHYTHMIA

REACTIONS (7)
  - VERTIGO [None]
  - MENIERE'S DISEASE [None]
  - NYSTAGMUS [None]
  - LYME DISEASE [None]
  - BORRELIA INFECTION [None]
  - VASCULAR INJURY [None]
  - HYPERTENSIVE CRISIS [None]
